FAERS Safety Report 7495973-7 (Version None)
Quarter: 2011Q2

REPORT INFORMATION
  Report Type: 
  Country: None (occurrence: None)
  Receive Date: 20110523
  Receipt Date: 20110518
  Transmission Date: 20111010
  Serious: Yes (Hospitalization)
  Sender: FDA-Public Use
  Company Number: FR-PFIZER INC-2011106189

PATIENT
  Age: 72 Year
  Sex: Female

DRUGS (4)
  1. ZOLPIDEM [Suspect]
     Indication: MAJOR DEPRESSION
     Route: 048
  2. ACEPROMAZINE/ACEPROMETAZINE/CLORAZEPATE DIPOTASSIUM [Concomitant]
     Dosage: UNK
     Dates: start: 20110116
  3. PROZAC [Suspect]
     Indication: MAJOR DEPRESSION
     Route: 048
  4. XANAX [Suspect]
     Indication: MAJOR DEPRESSION
     Dosage: UNK
     Route: 048

REACTIONS (1)
  - SUICIDE ATTEMPT [None]
